FAERS Safety Report 5026638-9 (Version None)
Quarter: 2006Q2

REPORT INFORMATION
  Report Type: 
  Country: None (occurrence: None)
  Receive Date: 20060615
  Receipt Date: 20060525
  Transmission Date: 20061013
  Serious: Yes (Death)
  Sender: FDA-Public Use
  Company Number: CCS-2005-001-059

PATIENT
  Age: 78 Year
  Sex: Female
  Weight: 47.7 kg

DRUGS (1)
  1. COREG [Suspect]
     Indication: CARDIAC FAILURE
     Route: 048
     Dates: start: 20051223

REACTIONS (1)
  - DEATH [None]
